FAERS Safety Report 8214294-8 (Version None)
Quarter: 2012Q1

REPORT INFORMATION
  Report Type: 
  Country: None (occurrence: None)
  Receive Date: 20120227
  Receipt Date: 20111219
  Transmission Date: 20120608
  Serious: No
  Sender: FDA-Public Use
  Company Number: 341672

PATIENT
  Age: 55 Year
  Sex: Female

DRUGS (1)
  1. VICTOZA [Suspect]
     Dosage: 0.6 MG, QD, SUBCUTANEOUS
     Route: 058
     Dates: start: 20111213

REACTIONS (2)
  - DIZZINESS [None]
  - BLADDER DISCOMFORT [None]
